FAERS Safety Report 7120129-7 (Version None)
Quarter: 2010Q4

REPORT INFORMATION
  Report Type: 
  Country: None (occurrence: None)
  Receive Date: 20101123
  Receipt Date: 20101116
  Transmission Date: 20110411
  Serious: Yes (Hospitalization)
  Sender: FDA-Public Use
  Company Number: US-JNJFOC-20101106329

PATIENT
  Sex: Female
  Weight: 66 kg

DRUGS (4)
  1. REMICADE [Suspect]
     Indication: CROHN'S DISEASE
     Route: 042
  2. HUMIRA [Suspect]
     Indication: PRODUCT USED FOR UNKNOWN INDICATION
  3. ANTIBIOTIC [Concomitant]
     Indication: INFLAMMATORY BOWEL DISEASE
  4. PREVACID [Concomitant]

REACTIONS (1)
  - PERIRECTAL ABSCESS [None]
